FAERS Safety Report 10232714 (Version 2)
Quarter: 2014Q2

REPORT INFORMATION
  Report Type: Spontaneous
  Country: US (occurrence: US)
  Receive Date: 20140612
  Receipt Date: 20140612
  Transmission Date: 20141212
  Serious: Yes (Other)
  Sender: FDA-Public Use
  Company Number: US-ASTRAZENECA-2010SE32790

PATIENT
  Age: 78 Year
  Sex: Female
  Weight: 99.8 kg

DRUGS (5)
  1. CRESTOR [Suspect]
     Route: 048
  2. ARIMIDEX [Suspect]
     Indication: BREAST CANCER
     Route: 048
     Dates: start: 2009
  3. SYMBICORT [Suspect]
     Indication: ASTHMA
     Dosage: 160/4.5, 2 PUFFS BID
     Route: 055
  4. NEXIUM [Suspect]
     Indication: GASTROOESOPHAGEAL REFLUX DISEASE
     Route: 048
  5. FISH OIL [Concomitant]
     Dosage: 1 MORNING 1 NIGHT

REACTIONS (6)
  - Gastrointestinal stromal cancer [Not Recovered/Not Resolved]
  - Dizziness [Unknown]
  - Abdominal pain [Unknown]
  - Pruritus [Unknown]
  - Off label use [Not Recovered/Not Resolved]
  - Drug dose omission [Not Recovered/Not Resolved]
